FAERS Safety Report 8096168-9 (Version None)
Quarter: 2012Q1

REPORT INFORMATION
  Report Type: 
  Country: None (occurrence: None)
  Receive Date: 20120131
  Receipt Date: 20120125
  Transmission Date: 20120608
  Serious: Yes (Hospitalization)
  Sender: FDA-Public Use
  Company Number: JP-GLAXOSMITHKLINE-B0778162A

PATIENT
  Age: 7 Decade
  Sex: Male

DRUGS (3)
  1. RELENZA [Suspect]
     Indication: INFLUENZA
     Route: 055
  2. AVAPRO [Concomitant]
     Indication: HYPERTENSION
     Route: 048
  3. ATELEC [Concomitant]
     Indication: HYPERTENSION
     Route: 048

REACTIONS (3)
  - DISORIENTATION [None]
  - APHAGIA [None]
  - ABNORMAL BEHAVIOUR [None]
